FAERS Safety Report 23939601 (Version 1)
Quarter: 2024Q2

REPORT INFORMATION
  Report Type: Spontaneous
  Country: US (occurrence: US)
  Receive Date: 20240605
  Receipt Date: 20240605
  Transmission Date: 20240715
  Serious: No
  Sender: FDA-Public Use
  Company Number: US-OTSUKA-2023_012216

PATIENT
  Age: 13 Year
  Sex: Female
  Weight: 43.5 kg

DRUGS (2)
  1. TOLVAPTAN [Suspect]
     Active Substance: TOLVAPTAN
     Indication: Inappropriate antidiuretic hormone secretion
     Dosage: 0.7 MG/KG/DAY (15 MG TWICE DAILY)
     Route: 048
  2. CONIVAPTAN [Suspect]
     Active Substance: CONIVAPTAN
     Indication: Inappropriate antidiuretic hormone secretion
     Dosage: UNK UNK, QD (0.2-0.5 MG/KG/DAY)
     Route: 042

REACTIONS (3)
  - Thirst [Unknown]
  - Nausea [Unknown]
  - Product use issue [Unknown]
